FAERS Safety Report 9033221 (Version 3)
Quarter: 2013Q1

REPORT INFORMATION
  Report Type: Spontaneous
  Country: ES (occurrence: ES)
  Receive Date: 20130128
  Receipt Date: 20130306
  Transmission Date: 20140127
  Serious: Yes (Death, Hospitalization)
  Sender: FDA-Public Use
  Company Number: ES-009507513-1301ESP010023

PATIENT
  Age: 85 Year
  Sex: Male

DRUGS (4)
  1. SINEMET 25/250 MG COMPRIMIDOS [Suspect]
     Indication: PARKINSON^S DISEASE
     Dosage: 1 DF, TID
     Route: 048
     Dates: start: 20121114, end: 20121227
  2. MIRAPEXIN [Interacting]
     Indication: PARKINSON^S DISEASE
     Dosage: UNK, QD
     Route: 048
     Dates: start: 20121109, end: 20121114
  3. LORAZEPAM [Interacting]
     Indication: DEPRESSION
     Dosage: UNK, QD
     Route: 048
     Dates: start: 20121029, end: 20121227
  4. AVIDART [Concomitant]
     Indication: BENIGN PROSTATIC HYPERPLASIA
     Route: 048
     Dates: start: 2008, end: 20121227

REACTIONS (1)
  - Depressed level of consciousness [Fatal]
